FAERS Safety Report 7580190-2 (Version None)
Quarter: 2011Q2

REPORT INFORMATION
  Report Type: 
  Country: None (occurrence: None)
  Receive Date: 20110629
  Receipt Date: 20110615
  Transmission Date: 20111010
  Serious: Yes (Other)
  Sender: FDA-Public Use
  Company Number: FR-BAYER-2011-052035

PATIENT
  Sex: Female

DRUGS (1)
  1. JASMINELLE [Suspect]
     Indication: PRODUCT USED FOR UNKNOWN INDICATION
     Dosage: UNK
     Route: 048
     Dates: start: 20070101

REACTIONS (3)
  - CEREBROVASCULAR ACCIDENT [None]
  - AMENORRHOEA [None]
  - MIGRAINE [None]
